FAERS Safety Report 7597862-6 (Version None)
Quarter: 2011Q3

REPORT INFORMATION
  Report Type: 
  Country: None (occurrence: None)
  Receive Date: 20110708
  Receipt Date: 20110630
  Transmission Date: 20111222
  Serious: Yes (Hospitalization)
  Sender: FDA-Public Use
  Company Number: US-MERCK-1105USA01170

PATIENT
  Age: 59 Year
  Sex: Female

DRUGS (36)
  1. OXYCONTIN [Concomitant]
     Route: 065
     Dates: start: 20010101, end: 20031201
  2. HYDROCODONE BITARTRATE AND ACETAMINOPHEN [Concomitant]
     Route: 065
     Dates: start: 20010101, end: 20031201
  3. METHADONE HYDROCHLORIDE [Concomitant]
     Route: 065
     Dates: start: 20051201, end: 20100301
  4. [THERAPY UNSPECIFIED] [Concomitant]
     Route: 065
     Dates: start: 20060707, end: 20070127
  5. CEPHALEXIN [Concomitant]
     Route: 065
     Dates: start: 20060414, end: 20060423
  6. POLYSACCHARIDE IRON COMPLEX [Concomitant]
     Route: 065
     Dates: start: 19910101
  7. FOSAMAX [Suspect]
     Indication: OSTEOPOROSIS
     Route: 048
     Dates: start: 19980101, end: 20100401
  8. FLONASE [Concomitant]
     Route: 065
     Dates: start: 20040316, end: 20040615
  9. MENTAX [Concomitant]
     Route: 065
     Dates: start: 20040517
  10. FOLIC ACID [Concomitant]
     Route: 065
     Dates: start: 19910101
  11. LYSINE HYDROCHLORIDE [Concomitant]
     Route: 065
     Dates: start: 19910101
  12. RESVERATROL [Concomitant]
     Route: 065
     Dates: start: 20090101
  13. PREMPRO [Concomitant]
     Route: 065
     Dates: end: 20100501
  14. PENICILLIN VK [Concomitant]
     Route: 065
     Dates: start: 20050830, end: 20050909
  15. ASCORBIC ACID [Concomitant]
     Route: 065
     Dates: start: 19910101
  16. MAGNESIUM (UNSPECIFIED) [Concomitant]
     Route: 065
     Dates: start: 19910101
  17. CHOLECALCIFEROL [Concomitant]
     Route: 065
     Dates: start: 19910101
  18. IBUPROFEN [Concomitant]
     Route: 065
  19. CELEBREX [Concomitant]
     Route: 065
  20. TOPROL-XL [Concomitant]
     Route: 065
     Dates: start: 20030129, end: 20030206
  21. BEXTRA [Concomitant]
     Route: 065
     Dates: end: 20050101
  22. GUAIFENESIN DM [Concomitant]
     Route: 065
     Dates: start: 20070317, end: 20070326
  23. IRON (UNSPECIFIED) [Concomitant]
     Route: 065
     Dates: start: 19910101
  24. POTASSIUM CHLORIDE [Concomitant]
     Route: 065
     Dates: start: 20051027
  25. HORMONES (UNSPECIFIED) [Concomitant]
     Route: 065
     Dates: end: 20110501
  26. UBIDECARENONE [Concomitant]
     Route: 065
     Dates: start: 20070101
  27. AMOXICILLIN AND CLAVULANATE POTASSIUM [Concomitant]
     Route: 065
     Dates: start: 20070317, end: 20070326
  28. OMEGA-3 MARINE TRIGLYCERIDES [Concomitant]
     Route: 065
     Dates: start: 19910101
  29. SINGULAIR [Concomitant]
     Route: 048
     Dates: start: 20040316
  30. BELLASPAS [Concomitant]
     Route: 065
     Dates: start: 20060707, end: 20070205
  31. VITAMINS (UNSPECIFIED) [Concomitant]
     Route: 065
     Dates: start: 19860101
  32. VITAMIN D (UNSPECIFIED) [Concomitant]
     Route: 065
     Dates: start: 19910101
  33. ALAVERT [Concomitant]
     Route: 065
  34. DURAGESIC-100 [Concomitant]
     Route: 065
     Dates: start: 20040201, end: 20051201
  35. QUININE SULFATE [Concomitant]
     Route: 065
     Dates: start: 20051031, end: 20080501
  36. CALCIUM (UNSPECIFIED) [Concomitant]
     Route: 065
     Dates: start: 19910101

REACTIONS (10)
  - BONE DEFORMITY [None]
  - INTERVERTEBRAL DISC PROTRUSION [None]
  - LEUKOCYTOSIS [None]
  - DIZZINESS [None]
  - FEMUR FRACTURE [None]
  - NAUSEA [None]
  - OSTEOPENIA [None]
  - CARDIOVASCULAR DISORDER [None]
  - RIB FRACTURE [None]
  - FALL [None]
